FAERS Safety Report 13500831 (Version 1)
Quarter: 2017Q2

REPORT INFORMATION
  Report Type: Spontaneous
  Country: US (occurrence: US)
  Receive Date: 20170501
  Receipt Date: 20170501
  Transmission Date: 20170830
  Serious: No
  Sender: FDA-Public Use
  Company Number: US-ROCHE-1822996

PATIENT
  Age: 81 Year
  Sex: Female

DRUGS (4)
  1. ESBRIET [Suspect]
     Active Substance: PIRFENIDONE
     Indication: PULMONARY ARTERIAL HYPERTENSION
     Route: 048
     Dates: start: 20160810, end: 20160814
  2. TYVASO [Concomitant]
     Active Substance: TREPROSTINIL
     Indication: PULMONARY ARTERIAL HYPERTENSION
     Route: 055
     Dates: start: 20150608
  3. ESBRIET [Suspect]
     Active Substance: PIRFENIDONE
     Dosage: LOWERED AFTERNOON DOSE TO 534 MG?801MG - 534MG - 801 MG
     Route: 048
     Dates: start: 20160814
  4. ESBRIET [Suspect]
     Active Substance: PIRFENIDONE
     Route: 048
     Dates: start: 20160712, end: 20160908

REACTIONS (5)
  - Nausea [Unknown]
  - Tinnitus [Unknown]
  - Drug intolerance [Unknown]
  - Insomnia [Unknown]
  - Diarrhoea [Unknown]

NARRATIVE: CASE EVENT DATE: 20160810
